FAERS Safety Report 22038073 (Version 1)
Quarter: 2023Q1

REPORT INFORMATION
  Report Type: Spontaneous
  Country: US (occurrence: US)
  Receive Date: 20230227
  Receipt Date: 20230227
  Transmission Date: 20230418
  Serious: No
  Sender: FDA-Public Use
  Company Number: US-IGSA-BIG0017458

PATIENT
  Age: 62 Year
  Sex: Female
  Weight: 91 kg

DRUGS (15)
  1. PROLASTIN-C LIQUID [Suspect]
     Active Substance: .ALPHA.1-PROTEINASE INHIBITOR HUMAN
     Indication: Alpha-1 antitrypsin deficiency
     Dosage: 5460 MILLIGRAM, Q.WK.
     Route: 042
     Dates: start: 20220118
  2. VITAMIN D NOS [Concomitant]
     Active Substance: VITAMIN D NOS
  3. VITAMIN C [Concomitant]
     Active Substance: ASCORBIC ACID
  4. TRELEGY ELLIPTA [Concomitant]
     Active Substance: FLUTICASONE FUROATE\UMECLIDINIUM BROMIDE\VILANTEROL TRIFENATATE
  5. SENNA S [Concomitant]
     Active Substance: DOCUSATE SODIUM\SENNA LEAF
  6. PREVACID [Concomitant]
     Active Substance: LANSOPRAZOLE
  7. PRAVASTATIN SODIUM [Concomitant]
     Active Substance: PRAVASTATIN SODIUM
  8. MULTI COMPLETE [Concomitant]
  9. METOPROLOL TARTRATE [Concomitant]
     Active Substance: METOPROLOL TARTRATE
  10. FLECAINIDE ACETATE [Concomitant]
     Active Substance: FLECAINIDE ACETATE
  11. EPINEPHRINE [Concomitant]
     Active Substance: EPINEPHRINE
  12. CITRUCEL [Concomitant]
     Active Substance: METHYLCELLULOSE (4000 MPA.S)
  13. ASPIRIN [Concomitant]
     Active Substance: ASPIRIN
  14. ASMANEX [Concomitant]
     Active Substance: MOMETASONE FUROATE
  15. ALBUTEROL SULFATE [Concomitant]
     Active Substance: ALBUTEROL SULFATE

REACTIONS (2)
  - Arthralgia [Recovering/Resolving]
  - Vascular access complication [Not Recovered/Not Resolved]

NARRATIVE: CASE EVENT DATE: 20220119
